FAERS Safety Report 22152581 (Version 5)
Quarter: 2024Q1

REPORT INFORMATION
  Report Type: Report from Study
  Country: US (occurrence: US)
  Receive Date: 20230329
  Receipt Date: 20240313
  Transmission Date: 20240409
  Serious: Yes (Other)
  Sender: FDA-Public Use
  Company Number: US-ABBVIE-4264311

PATIENT
  Age: 48 Year
  Sex: Female

DRUGS (3)
  1. SKYRIZI [Suspect]
     Active Substance: RISANKIZUMAB-RZAA
     Indication: Psoriatic arthropathy
     Dosage: WEEK 0 FORM STRENGTH: 150 MILLIGRAM
     Route: 058
     Dates: start: 20221220, end: 20221220
  2. SKYRIZI [Suspect]
     Active Substance: RISANKIZUMAB-RZAA
     Dosage: FORM STRENGTH: 150 MILLIGRAM WEEK 4
     Route: 058
     Dates: start: 2023, end: 2023
  3. SKYRIZI [Suspect]
     Active Substance: RISANKIZUMAB-RZAA
     Dosage: FORM STRENGTH : 150 MILLIGRAM, WEEK
     Route: 058
     Dates: start: 2023

REACTIONS (18)
  - Skin cancer [Recovering/Resolving]
  - Incontinence [Unknown]
  - Joint range of motion decreased [Recovering/Resolving]
  - Grip strength decreased [Recovering/Resolving]
  - Pain [Recovering/Resolving]
  - Off label use [Unknown]
  - Loss of personal independence in daily activities [Recovering/Resolving]
  - Arthralgia [Not Recovered/Not Resolved]
  - Mobility decreased [Recovering/Resolving]
  - Gait disturbance [Not Recovered/Not Resolved]
  - Poor quality sleep [Recovering/Resolving]
  - Skin disorder [Recovering/Resolving]
  - Skin hyperpigmentation [Recovering/Resolving]
  - Insomnia [Recovering/Resolving]
  - Drug ineffective [Unknown]
  - Alopecia [Recovering/Resolving]
  - Weight bearing difficulty [Not Recovered/Not Resolved]
  - Joint lock [Not Recovered/Not Resolved]

NARRATIVE: CASE EVENT DATE: 20230101
